FAERS Safety Report 25805507 (Version 1)
Quarter: 2025Q3

REPORT INFORMATION
  Report Type: Spontaneous
  Country: US (occurrence: US)
  Receive Date: 20250916
  Receipt Date: 20250916
  Transmission Date: 20251020
  Serious: Yes (Other)
  Sender: CHEPLAPHARM
  Company Number: US-CHEPLA-2025010771

PATIENT
  Age: 75 Year
  Sex: Female

DRUGS (1)
  1. HYDROXYUREA [Suspect]
     Active Substance: HYDROXYUREA
     Indication: Chronic myeloid leukaemia

REACTIONS (5)
  - Tumour lysis syndrome [Unknown]
  - Cardiac failure [Unknown]
  - Malaise [Unknown]
  - Dyspnoea [Unknown]
  - Hyperuricaemia [Unknown]
